FAERS Safety Report 13266423 (Version 9)
Quarter: 2021Q2

REPORT INFORMATION
  Report Type: Spontaneous
  Country: US (occurrence: CO)
  Receive Date: 20170223
  Receipt Date: 20210430
  Transmission Date: 20210716
  Serious: Yes (Hospitalization)
  Sender: FDA-Public Use
  Company Number: CO-BIOMARINAP-CO-2017-112941

PATIENT
  Age: 35 Year
  Sex: Male

DRUGS (2)
  1. ALDURAZYME [Suspect]
     Active Substance: LARONIDASE
     Dosage: 14 DOSAGE FORM, QW
     Route: 041
     Dates: start: 20100114
  2. ALDURAZYME [Suspect]
     Active Substance: LARONIDASE
     Indication: MUCOPOLYSACCHARIDOSIS I
     Dosage: 14 DOSAGE FORM, QOW
     Route: 041
     Dates: start: 20090501

REACTIONS (18)
  - Gait disturbance [Recovered/Resolved]
  - Sensory disturbance [Recovering/Resolving]
  - Nasal congestion [Recovered/Resolved]
  - Nerve block [Recovering/Resolving]
  - Vomiting [Recovering/Resolving]
  - Arthralgia [Recovering/Resolving]
  - Hernia pain [Unknown]
  - Off label use [Unknown]
  - Movement disorder [Recovered/Resolved]
  - Inguinal hernia [Unknown]
  - Intervertebral disc protrusion [Recovered/Resolved]
  - Limb operation [Recovering/Resolving]
  - Inguinal hernia [Recovered/Resolved]
  - Hernia pain [Recovered/Resolved]
  - Influenza [Recovered/Resolved]
  - Back pain [Recovered/Resolved]
  - Dizziness [Recovering/Resolving]
  - Pain [Recovered/Resolved]

NARRATIVE: CASE EVENT DATE: 20090501
